FAERS Safety Report 26114290 (Version 1)
Quarter: 2025Q4

REPORT INFORMATION
  Report Type: Spontaneous
  Country: EU (occurrence: EU)
  Receive Date: 20251202
  Receipt Date: 20251202
  Transmission Date: 20260118
  Serious: Yes (Death, Life-Threatening, Other)
  Sender: B. BRAUN MEDICAL INC.
  Company Number: EU-B. Braun Medical Inc.-NO-BBM-202504594

PATIENT
  Age: 34 Year
  Sex: Female

DRUGS (3)
  1. ACETAMINOPHEN [Suspect]
     Active Substance: ACETAMINOPHEN
     Indication: Intentional overdose
     Dosage: 50G
  2. IRON [Suspect]
     Active Substance: IRON
     Dosage: 5G
  3. ALCOHOL [Suspect]
     Active Substance: ALCOHOL

REACTIONS (4)
  - Hepatic failure [Fatal]
  - Drug interaction [Fatal]
  - Intentional overdose [Fatal]
  - Toxicity to various agents [Fatal]
